FAERS Safety Report 4503277-7 (Version None)
Quarter: 2004Q4

REPORT INFORMATION
  Report Type: 
  Country: None (occurrence: None)
  Receive Date: 20041112
  Receipt Date: 20041102
  Transmission Date: 20050328
  Serious: No
  Sender: FDA-Public Use
  Company Number: DE-2004-033677

PATIENT
  Sex: Female

DRUGS (2)
  1. MIRENA [Suspect]
     Indication: CONTRACEPTION
     Dosage: 20 UG/DAY, CONT, INTRA-UTERINE
     Route: 015
     Dates: start: 20020301
  2. GYNOKADIN GEL (ESTRADIOL) [Suspect]
     Indication: MENORRHAGIA
     Dosage: TRANSDERMAL
     Route: 062

REACTIONS (4)
  - CONDITION AGGRAVATED [None]
  - MENORRHAGIA [None]
  - PAIN IN EXTREMITY [None]
  - VARICOSE VEIN [None]
